FAERS Safety Report 7474516-8 (Version None)
Quarter: 2011Q2

REPORT INFORMATION
  Report Type: 
  Country: None (occurrence: None)
  Receive Date: 20110512
  Receipt Date: 20110502
  Transmission Date: 20111010
  Serious: Yes (Death)
  Sender: FDA-Public Use
  Company Number: US-BIOGENIDEC-2011BI013564

PATIENT
  Age: 56 Year
  Sex: Male

DRUGS (6)
  1. TYSABRI [Suspect]
     Indication: MULTIPLE SCLEROSIS
     Route: 042
     Dates: start: 20080215, end: 20110311
  2. EFFEXOR [Concomitant]
  3. OXYBUTYNIN [Concomitant]
  4. MARINOL [Concomitant]
  5. CIALIS [Concomitant]
  6. UNKNOWN MEDICATION [Concomitant]

REACTIONS (1)
  - INJURY [None]
